FAERS Safety Report 11424694 (Version 2)
Quarter: 2018Q2

REPORT INFORMATION
  Report Type: Report from Study
  Country: US (occurrence: US)
  Receive Date: 20150827
  Receipt Date: 20180530
  Transmission Date: 20180711
  Serious: Yes (Other)
  Sender: FDA-Public Use
  Company Number: US-ASTRAZENECA-2015SE80991

PATIENT
  Sex: Male

DRUGS (12)
  1. SPIRIVA [Concomitant]
     Active Substance: TIOTROPIUM BROMIDE MONOHYDRATE
  2. DALIRESP [Suspect]
     Active Substance: ROFLUMILAST
     Route: 048
  3. DALIRESP [Suspect]
     Active Substance: ROFLUMILAST
     Dosage: HALF OF A TABLET
     Route: 048
  4. DALIRESP [Suspect]
     Active Substance: ROFLUMILAST
     Dosage: HALF TABLET EVERY OTHER DAY
     Route: 048
  5. DALIRESP [Suspect]
     Active Substance: ROFLUMILAST
     Dosage: ONE WHOLE TABLET
     Route: 048
  6. ALBUTEROL. [Concomitant]
     Active Substance: ALBUTEROL
  7. DALIRESP [Suspect]
     Active Substance: ROFLUMILAST
     Dosage: ONE WHOLE TABLET
     Route: 048
  8. DALIRESP [Suspect]
     Active Substance: ROFLUMILAST
     Dosage: HALF OF A TABLET IN THE MORNING AND HALF A TABLET AT NIGHT
     Route: 048
  9. SYMBICORT [Suspect]
     Active Substance: BUDESONIDE\FORMOTEROL FUMARATE DIHYDRATE
     Route: 055
  10. DALIRESP [Suspect]
     Active Substance: ROFLUMILAST
     Dosage: ONE WHOLE TABLET ONE DAY AND THEN HALF OF A TABLET THE NEXT DAY
     Route: 048
  11. DALIRESP [Suspect]
     Active Substance: ROFLUMILAST
     Dosage: HALF OF A TABLET
     Route: 048
     Dates: start: 20150819
  12. MUCINEX [Concomitant]
     Active Substance: GUAIFENESIN

REACTIONS (11)
  - Nausea [Recovered/Resolved]
  - Abdominal discomfort [Unknown]
  - Malaise [Unknown]
  - Weight decreased [Unknown]
  - Chronic obstructive pulmonary disease [Unknown]
  - Productive cough [Unknown]
  - Drug dose omission [Unknown]
  - Back pain [Unknown]
  - Condition aggravated [Unknown]
  - Intentional product misuse [Unknown]
  - Insomnia [Unknown]

NARRATIVE: CASE EVENT DATE: 20180523
